FAERS Safety Report 5787164-2 (Version None)
Quarter: 2008Q2

REPORT INFORMATION
  Report Type: 
  Country: None (occurrence: None)
  Receive Date: 20080625
  Receipt Date: 20080414
  Transmission Date: 20081010
  Serious: No
  Sender: FDA-Public Use
  Company Number: US-BAUSCH-2008BL001666

PATIENT
  Age: 8 Year
  Sex: Male

DRUGS (3)
  1. ALAWAY [Suspect]
     Indication: SEASONAL ALLERGY
     Route: 047
     Dates: start: 20080410, end: 20080412
  2. ALLEGRA [Concomitant]
     Indication: HYPERSENSITIVITY
  3. VERAMYST [Concomitant]
     Indication: HYPERSENSITIVITY

REACTIONS (2)
  - EYE IRRITATION [None]
  - INSTILLATION SITE IRRITATION [None]
